FAERS Safety Report 15602010 (Version 1)
Quarter: 2018Q4

REPORT INFORMATION
  Report Type: Spontaneous
  Country: FR (occurrence: FR)
  Receive Date: 20181109
  Receipt Date: 20181109
  Transmission Date: 20190205
  Serious: Yes (Hospitalization)
  Sender: FDA-Public Use
  Company Number: FR-BIOVITRUM-2018FR1368

PATIENT
  Age: 31 Week

DRUGS (4)
  1. PREDNISONE. [Concomitant]
     Active Substance: PREDNISONE
     Route: 064
  2. KINERET [Suspect]
     Active Substance: ANAKINRA
     Route: 064
  3. KINERET [Suspect]
     Active Substance: ANAKINRA
     Route: 064
  4. IMUREL [Concomitant]
     Active Substance: AZATHIOPRINE SODIUM
     Route: 064

REACTIONS (5)
  - Enterobacter pneumonia [Recovered/Resolved]
  - Sepsis [Recovered/Resolved]
  - Bradycardia foetal [Unknown]
  - Premature baby [Unknown]
  - Maternal exposure during pregnancy [Recovered/Resolved]
